FAERS Safety Report 4337872-5 (Version None)
Quarter: 2004Q2

REPORT INFORMATION
  Report Type: 
  Country: None (occurrence: None)
  Receive Date: 20040407
  Receipt Date: 20040324
  Transmission Date: 20050107
  Serious: Yes (Death, Hospitalization, Other)
  Sender: FDA-Public Use
  Company Number: NSADSS2001027048

PATIENT
  Age: 77 Year
  Sex: Female
  Weight: 62 kg

DRUGS (8)
  1. REMICADE [Suspect]
     Indication: RHEUMATOID ARTHRITIS
     Dosage: SEE IMAGE
     Route: 041
     Dates: start: 20010605, end: 20010605
  2. REMICADE [Suspect]
     Indication: RHEUMATOID ARTHRITIS
     Dosage: SEE IMAGE
     Route: 041
     Dates: start: 20010622, end: 20010622
  3. REMICADE [Suspect]
     Indication: RHEUMATOID ARTHRITIS
     Dosage: SEE IMAGE
     Route: 041
     Dates: start: 20010723, end: 20010723
  4. METHOTREXATE [Concomitant]
  5. METHYLPREDNISOLONE [Concomitant]
  6. OMEPRAZOLE [Concomitant]
  7. CALCIUM WITH VITAMIN D (CALCIUM WITH VITAMIN D) [Concomitant]
  8. ACFOL (FOLIC ACID) [Concomitant]

REACTIONS (5)
  - CHOLESTASIS [None]
  - DISSEMINATED TUBERCULOSIS [None]
  - ESCHERICHIA URINARY TRACT INFECTION [None]
  - HEPATITIS GRANULOMATOUS [None]
  - UTERINE CANCER [None]
